FAERS Safety Report 10568004 (Version 1)
Quarter: 2014Q4

REPORT INFORMATION
  Report Type: Spontaneous
  Country: US (occurrence: None)
  Receive Date: 20141105
  Receipt Date: 20141105
  Transmission Date: 20150529
  Serious: Yes (Other)
  Sender: FDA-Public Use
  Company Number: None

PATIENT
  Age: 55 Year
  Sex: Female

DRUGS (4)
  1. TOPIRAMATE. [Concomitant]
     Active Substance: TOPIRAMATE
  2. LIALDA [Concomitant]
     Active Substance: MESALAMINE
  3. VITAMIN C [Concomitant]
     Active Substance: ASCORBIC ACID
  4. TECFIDERA [Suspect]
     Active Substance: DIMETHYL FUMARATE
     Indication: MULTIPLE SCLEROSIS
     Route: 048
     Dates: start: 20140618

REACTIONS (2)
  - Impaired work ability [None]
  - Diarrhoea [None]

NARRATIVE: CASE EVENT DATE: 20141103
